FAERS Safety Report 15382103 (Version 1)
Quarter: 2018Q3

REPORT INFORMATION
  Report Type: Spontaneous
  Country: US (occurrence: US)
  Receive Date: 20180913
  Receipt Date: 20180913
  Transmission Date: 20181010
  Serious: No
  Sender: FDA-Public Use
  Company Number: US-BIOMARINAP-US-2018-119712

PATIENT
  Sex: Male

DRUGS (2)
  1. KUVAN [Suspect]
     Active Substance: SAPROPTERIN DIHYDROCHLORIDE
     Indication: PHENYLKETONURIA
     Dosage: 1600 MILLIGRAM, QD
     Route: 048
     Dates: start: 20130822
  2. KUVAN [Suspect]
     Active Substance: SAPROPTERIN DIHYDROCHLORIDE
     Indication: PHENYLKETONURIA

REACTIONS (2)
  - Asthenia [Not Recovered/Not Resolved]
  - Depressed mood [Not Recovered/Not Resolved]
